FAERS Safety Report 16280122 (Version 1)
Quarter: 2019Q2

REPORT INFORMATION
  Report Type: Spontaneous
  Country: US (occurrence: US)
  Receive Date: 20190401
  Receipt Date: 20190401
  Transmission Date: 20190711
  Serious: No
  Sender: FDA-Public Use
  Company Number: None

PATIENT
  Age: 53 Year
  Sex: Male

DRUGS (1)
  1. H.P. ACTHAR [Suspect]
     Active Substance: CORTICOTROPIN
     Dates: start: 201812

REACTIONS (3)
  - Oedema [None]
  - White blood cell count decreased [None]
  - Therapy cessation [None]

NARRATIVE: CASE EVENT DATE: 20190401
